FAERS Safety Report 4334753-8 (Version None)
Quarter: 2004Q2

REPORT INFORMATION
  Report Type: 
  Country: None (occurrence: None)
  Receive Date: 20040405
  Receipt Date: 20040319
  Transmission Date: 20050107
  Serious: Yes (Death, Hospitalization)
  Sender: FDA-Public Use
  Company Number: A-US2003-02919

PATIENT
  Age: 79 Year
  Sex: Female

DRUGS (11)
  1. TRACLEER [Suspect]
     Indication: PULMONARY HYPERTENSION
     Dosage: 62.5 MG, QD, ORAL
     Route: 048
     Dates: start: 20030601
  2. DIOVAN ^CIBA-GEIGY^ (VALSARTAN) [Concomitant]
  3. ISOSORBIDE DINITRATE [Concomitant]
  4. ASPIRIN [Concomitant]
  5. LIPITOR [Concomitant]
  6. MIRAPEX ^BOEHRINGER INGELHEIM^ (PRAMIPEXOLE DIHYDROCHLORIDE) [Concomitant]
  7. INSULIN [Concomitant]
  8. HYDROCHLOROTHIAZIDE [Concomitant]
  9. NORVASC [Concomitant]
  10. FOSAMAX [Concomitant]
  11. CALCIUM (CALCIUM) [Concomitant]

REACTIONS (2)
  - ANAEMIA [None]
  - GASTROINTESTINAL HAEMORRHAGE [None]
